FAERS Safety Report 8552510 (Version 3)
Quarter: 2013Q4

REPORT INFORMATION
  Report Type: Report from Study
  Country: IT (occurrence: IT)
  Receive Date: 20120508
  Receipt Date: 20131209
  Transmission Date: 20140711
  Serious: Yes (Death, Other)
  Sender: FDA-Public Use
  Company Number: IT-CELGENEUS-083-21880-11060622

PATIENT
  Age: 48 Year
  Sex: Male
  Weight: 48 kg

DRUGS (6)
  1. REVLIMID [Suspect]
     Indication: PLASMA CELL MYELOMA
     Dosage: 10 MILLIGRAM
     Route: 048
  2. REVLIMID [Suspect]
     Dosage: 15,20,25
     Route: 048
  3. DEXAMETHASONE [Suspect]
     Indication: PLASMA CELL MYELOMA
     Dosage: 40 MILLIGRAM
     Route: 048
  4. GRANULOKINE [Suspect]
     Indication: PRODUCT USED FOR UNKNOWN INDICATION
     Dosage: 128.5714 MICROGRAM
     Route: 058
  5. EPREX [Suspect]
     Indication: PRODUCT USED FOR UNKNOWN INDICATION
     Dosage: 11428.5714 IU (INTERNATIONAL UNIT)
     Route: 058
  6. BENDAMUSTINE [Concomitant]
     Indication: PLASMA CELL MYELOMA
     Dosage: 40, 50 ,60
     Route: 065

REACTIONS (4)
  - Bronchopneumonia [Fatal]
  - Renal failure [Fatal]
  - Acute pulmonary oedema [Fatal]
  - Cardio-respiratory arrest [Fatal]
